FAERS Safety Report 5195624-0 (Version None)
Quarter: 2006Q4

REPORT INFORMATION
  Report Type: 
  Country: None (occurrence: None)
  Receive Date: 20061226
  Receipt Date: 20061226
  Transmission Date: 20070319
  Serious: No
  Sender: FDA-Public Use
  Company Number: None

PATIENT
  Age: 73 Year
  Sex: Male
  Weight: 83.4619 kg

DRUGS (1)
  1. ROSUVASTATIN    20 MG [Suspect]
     Indication: HYPERLIPIDAEMIA
     Dosage: 20 MG    1/2 TABLET QHS   PO
     Route: 048
     Dates: start: 20061020, end: 20061120

REACTIONS (3)
  - DIZZINESS [None]
  - MUSCLE SPASMS [None]
  - MYALGIA [None]
